FAERS Safety Report 15084370 (Version 1)
Quarter: 2018Q2

REPORT INFORMATION
  Report Type: Spontaneous
  Country: JP (occurrence: JP)
  Receive Date: 20180628
  Receipt Date: 20180628
  Transmission Date: 20180711
  Serious: Yes (Other)
  Sender: FDA-Public Use
  Company Number: JP-MYLANLABS-2018M1046655

PATIENT
  Age: 54 Year
  Sex: Male

DRUGS (12)
  1. BEVACIZUMAB. [Suspect]
     Active Substance: BEVACIZUMAB
     Dosage: WITH FOLFIRI REGIMEN
     Route: 065
  2. IRINOTECAN [Suspect]
     Active Substance: IRINOTECAN
     Indication: RECTOSIGMOID CANCER STAGE IV
     Dosage: WITH FOLFIRI REGIMEN
     Route: 065
  3. FLUOROURACIL. [Suspect]
     Active Substance: FLUOROURACIL
     Dosage: SLV5FU2 REGIMEN
     Route: 065
     Dates: start: 201206
  4. FOLINIC ACID [Suspect]
     Active Substance: LEUCOVORIN
     Dosage: FOLFIRI REGIMEN
     Route: 065
  5. PANITUMUMAB [Concomitant]
     Active Substance: PANITUMUMAB
     Indication: RECTOSIGMOID CANCER STAGE IV
     Dosage: WITH SLV5FU2 REGIMEN
     Route: 065
  6. FLUOROURACIL. [Suspect]
     Active Substance: FLUOROURACIL
     Dosage: FOLFIRI REGIMEN
     Route: 065
  7. OXALIPLATIN. [Suspect]
     Active Substance: OXALIPLATIN
     Indication: RECTOSIGMOID CANCER STAGE IV
     Dosage: MFOLFOX6 REGIMEN
     Route: 065
     Dates: start: 201009
  8. FLUOROURACIL. [Suspect]
     Active Substance: FLUOROURACIL
     Indication: RECTOSIGMOID CANCER STAGE IV
     Dosage: MFOLFOX6 REGIMEN
     Route: 065
     Dates: start: 201009
  9. FOLINIC ACID [Suspect]
     Active Substance: LEUCOVORIN
     Dosage: SLV5FU2 REGIMEN
     Route: 065
     Dates: start: 201206
  10. FOLINIC ACID [Suspect]
     Active Substance: LEUCOVORIN
     Indication: RECTOSIGMOID CANCER STAGE IV
     Dosage: MFOLFOX6 REGIMEN
     Route: 065
     Dates: start: 201009
  11. BEVACIZUMAB. [Suspect]
     Active Substance: BEVACIZUMAB
     Indication: RECTOSIGMOID CANCER STAGE IV
     Dosage: WITH MFOLFOX6 REGIMEN
     Route: 065
     Dates: start: 201009
  12. REGORAFENIB. [Suspect]
     Active Substance: REGORAFENIB
     Indication: RECTOSIGMOID CANCER STAGE IV
     Dosage: FOR 3 WEEKS WITH A 1-WEEK BREAK. (INITIAL DOSE NOT STATED)
     Route: 065
     Dates: start: 201401

REACTIONS (4)
  - Hypersensitivity [Unknown]
  - Palmar-plantar erythrodysaesthesia syndrome [Unknown]
  - Neuropathy peripheral [Recovering/Resolving]
  - Rash [Unknown]
